FAERS Safety Report 8967014 (Version 1)
Quarter: 2012Q4

REPORT INFORMATION
  Report Type: Report from Study
  Country: DE (occurrence: DE)
  Receive Date: 20121214
  Receipt Date: 20121214
  Transmission Date: 20130627
  Serious: Yes (Other)
  Sender: FDA-Public Use
  Company Number: DE-B.I. PHARMACEUTICALS,INC./RIDGEFIELD-2012-DE-03011DE

PATIENT
  Age: 49 Year
  Sex: Male

DRUGS (2)
  1. MICARDIS HCT [Suspect]
     Dosage: 7 anz
     Route: 048
     Dates: start: 20121211, end: 20121211
  2. AMLODIPIN [Suspect]
     Dosage: 28 anz
     Route: 048
     Dates: start: 20121211, end: 20121211

REACTIONS (1)
  - Drug abuse [Unknown]
